FAERS Safety Report 21407634 (Version 2)
Quarter: 2022Q4

REPORT INFORMATION
  Report Type: Report from Study
  Country: JP (occurrence: JP)
  Receive Date: 20221004
  Receipt Date: 20221115
  Transmission Date: 20230112
  Serious: Yes (Other)
  Sender: FDA-Public Use
  Company Number: JP-GLAXOSMITHKLINE-JP2022JPN106331

PATIENT

DRUGS (42)
  1. MEPOLIZUMAB [Suspect]
     Active Substance: MEPOLIZUMAB
     Indication: Eosinophilic granulomatosis with polyangiitis
     Dosage: 300 MG
     Route: 058
     Dates: start: 20180928, end: 20180928
  2. MEPOLIZUMAB [Suspect]
     Active Substance: MEPOLIZUMAB
     Dosage: 300 MG
     Route: 058
     Dates: start: 20181218, end: 20181218
  3. MEPOLIZUMAB [Suspect]
     Active Substance: MEPOLIZUMAB
     Dosage: 300 MG
     Route: 058
     Dates: start: 20190419, end: 20190419
  4. MEPOLIZUMAB [Suspect]
     Active Substance: MEPOLIZUMAB
     Dosage: 300 MG
     Route: 058
     Dates: start: 20190614, end: 20190614
  5. MEPOLIZUMAB [Suspect]
     Active Substance: MEPOLIZUMAB
     Dosage: 300 MG
     Route: 058
     Dates: start: 20190712, end: 20190712
  6. MEPOLIZUMAB [Suspect]
     Active Substance: MEPOLIZUMAB
     Dosage: 300 MG
     Route: 058
     Dates: start: 20191029, end: 20191029
  7. MEPOLIZUMAB [Suspect]
     Active Substance: MEPOLIZUMAB
     Dosage: 300 MG
     Route: 058
     Dates: start: 20200428, end: 20200428
  8. MEPOLIZUMAB [Suspect]
     Active Substance: MEPOLIZUMAB
     Dosage: 300 MG
     Route: 058
     Dates: start: 20200526, end: 20200526
  9. MEPOLIZUMAB [Suspect]
     Active Substance: MEPOLIZUMAB
     Dosage: 300 MG
     Route: 058
     Dates: start: 20200626, end: 20200626
  10. PREDONINE [Concomitant]
     Active Substance: PREDNISOLONE
     Indication: Eosinophilic granulomatosis with polyangiitis
     Dosage: 20 MG, 1D
  11. FLUTICASONE FUROATE\VILANTEROL TRIFENATATE [Concomitant]
     Active Substance: FLUTICASONE FUROATE\VILANTEROL TRIFENATATE
     Dosage: 200 ?G, 1D
     Route: 055
  12. HYDROCORTONE [Concomitant]
     Active Substance: HYDROCORTISONE
     Indication: Eosinophilic granulomatosis with polyangiitis
     Dosage: UNK
     Route: 042
  13. HYDROCORTONE [Concomitant]
     Active Substance: HYDROCORTISONE
     Dosage: 200 MG, 1D
     Route: 042
     Dates: start: 20200526, end: 20200526
  14. TRAMAL OD TABLETS [Concomitant]
     Indication: Eosinophilic granulomatosis with polyangiitis
  15. EPERISONE HYDROCHLORIDE [Concomitant]
     Active Substance: EPERISONE HYDROCHLORIDE
  16. LYRICA OD TABLETS [Concomitant]
     Indication: Eosinophilic granulomatosis with polyangiitis
  17. AZOSEMIDE [Concomitant]
     Active Substance: AZOSEMIDE
     Indication: Eosinophilic granulomatosis with polyangiitis
  18. AZOSEMIDE [Concomitant]
     Active Substance: AZOSEMIDE
     Indication: Oedema
  19. ASPIRIN [Concomitant]
     Active Substance: ASPIRIN
     Indication: Prophylaxis
  20. ASPIRIN [Concomitant]
     Active Substance: ASPIRIN
     Indication: Eosinophilic granulomatosis with polyangiitis
  21. VONOPRAZAN FUMARATE [Concomitant]
     Active Substance: VONOPRAZAN FUMARATE
     Indication: Prophylaxis against gastrointestinal ulcer
  22. SULFAMETHOXAZOLE\TRIMETHOPRIM [Concomitant]
     Active Substance: SULFAMETHOXAZOLE\TRIMETHOPRIM
     Indication: Antifungal prophylaxis
  23. SPIRONOLACTONE [Concomitant]
     Active Substance: SPIRONOLACTONE
     Indication: Eosinophilic granulomatosis with polyangiitis
  24. ELDECALCITOL [Concomitant]
     Active Substance: ELDECALCITOL
     Indication: Osteoporosis prophylaxis
  25. MAGNESIUM OXIDE [Concomitant]
     Active Substance: MAGNESIUM OXIDE
  26. CLARITHROMYCIN [Concomitant]
     Active Substance: CLARITHROMYCIN
  27. SPIRIVA [Concomitant]
     Active Substance: TIOTROPIUM BROMIDE MONOHYDRATE
     Indication: Eosinophilic granulomatosis with polyangiitis
  28. CARBOCYSTEINE [Concomitant]
     Active Substance: CARBOCYSTEINE
  29. FEXOFENADINE HYDROCHLORIDE\PSEUDOEPHEDRINE HYDROCHLORIDE [Concomitant]
     Active Substance: FEXOFENADINE HYDROCHLORIDE\PSEUDOEPHEDRINE HYDROCHLORIDE
  30. RUPAFIN [Concomitant]
     Active Substance: RUPATADINE FUMARATE
  31. GLYCOSAMINOGLYCANS [Concomitant]
     Active Substance: GLYCOSAMINOGLYCANS
     Indication: Eosinophilic granulomatosis with polyangiitis
  32. HIRUDOID LOTION [Concomitant]
     Indication: Eosinophilic granulomatosis with polyangiitis
  33. GLANATEC OPHTHALMIC [Concomitant]
     Indication: Ocular hypertension
  34. BETAMETHASONE SODIUM PHOSPHATE [Concomitant]
     Active Substance: BETAMETHASONE SODIUM PHOSPHATE
     Indication: Eosinophilic granulomatosis with polyangiitis
     Dosage: 4 MG, 1D
     Route: 042
     Dates: start: 20200526, end: 20200526
  35. TOCOPHERYL NICOTINATE, D-.ALPHA. [Concomitant]
     Active Substance: TOCOPHERYL NICOTINATE, D-.ALPHA.
     Indication: Eosinophilic granulomatosis with polyangiitis
  36. BERAPROST SODIUM [Concomitant]
     Active Substance: BERAPROST SODIUM
     Indication: Eosinophilic granulomatosis with polyangiitis
  37. CARBAZOCHROME SODIUM SULFONATE [Concomitant]
     Active Substance: CARBAZOCHROME SODIUM SULFONATE
     Indication: Eosinophilic granulomatosis with polyangiitis
  38. TRANEXAMIC ACID [Concomitant]
     Active Substance: TRANEXAMIC ACID
     Indication: Eosinophilic granulomatosis with polyangiitis
  39. GEBEN CREAM [Concomitant]
     Indication: Eosinophilic granulomatosis with polyangiitis
  40. MIROGABALIN BESYLATE [Concomitant]
     Active Substance: MIROGABALIN BESYLATE
     Indication: Eosinophilic granulomatosis with polyangiitis
  41. FUROSEMIDE [Concomitant]
     Active Substance: FUROSEMIDE
     Indication: Eosinophilic granulomatosis with polyangiitis
  42. FLUCONAZOLE [Concomitant]
     Active Substance: FLUCONAZOLE
     Indication: Prophylaxis

REACTIONS (3)
  - Breast cancer [Not Recovered/Not Resolved]
  - Staphylococcal bacteraemia [Recovered/Resolved]
  - Inappropriate schedule of product administration [Unknown]

NARRATIVE: CASE EVENT DATE: 20181218
